FAERS Safety Report 7606632-1 (Version None)
Quarter: 2011Q3

REPORT INFORMATION
  Report Type: 
  Country: None (occurrence: None)
  Receive Date: 20110713
  Receipt Date: 20110704
  Transmission Date: 20111222
  Serious: Yes (Other)
  Sender: FDA-Public Use
  Company Number: US-ASTRAZENECA-2011SE39814

PATIENT
  Age: 49 Year
  Sex: Male
  Weight: 83 kg

DRUGS (2)
  1. SYMBICORT [Suspect]
     Indication: ASTHMA
     Dosage: 200/6, 1DF TWO TIMES A DAY
     Route: 055
     Dates: start: 20110610, end: 20110611
  2. SERETIDE [Concomitant]
     Indication: ASTHMA
     Route: 048
     Dates: start: 20080101, end: 20110610

REACTIONS (3)
  - OEDEMA [None]
  - RASH GENERALISED [None]
  - ARTHRALGIA [None]
